FAERS Safety Report 6735090-4 (Version None)
Quarter: 2010Q2

REPORT INFORMATION
  Report Type: 
  Country: None (occurrence: None)
  Receive Date: 20100521
  Receipt Date: 20100518
  Transmission Date: 20101027
  Serious: Yes (Death, Hospitalization)
  Sender: FDA-Public Use
  Company Number: IN-ELI_LILLY_AND_COMPANY-IN201005004692

PATIENT
  Age: 75 Year
  Sex: Male
  Weight: 76 kg

DRUGS (5)
  1. XIGRIS [Suspect]
     Indication: INFECTION
     Dosage: UNK, UNKNOWN
     Route: 065
     Dates: start: 20100517, end: 20100517
  2. MEROPENEM [Concomitant]
     Dosage: UNK, UNK
     Route: 042
     Dates: start: 20100501
  3. NORADRENALINE [Concomitant]
     Dates: start: 20100501
  4. DOPAMINE HCL [Concomitant]
     Dates: start: 20100501
  5. DOBUTAMINE HCL [Concomitant]
     Dates: start: 20100501

REACTIONS (3)
  - HYPOTENSION [None]
  - INTERNATIONAL NORMALISED RATIO INCREASED [None]
  - PROTHROMBIN TIME PROLONGED [None]
